FAERS Safety Report 4378778-5 (Version None)
Quarter: 2004Q2

REPORT INFORMATION
  Report Type: 
  Country: None (occurrence: None)
  Receive Date: 20040609
  Receipt Date: 20040521
  Transmission Date: 20050107
  Serious: Yes (Other)
  Sender: FDA-Public Use
  Company Number: USA040258429

PATIENT
  Age: 8 Year
  Sex: Male
  Weight: 30 kg

DRUGS (4)
  1. STRATTERA [Suspect]
     Indication: ATTENTION DEFICIT/HYPERACTIVITY DISORDER
     Dosage: 36 MG/DAY
     Dates: start: 20031017, end: 20031125
  2. FLOVENT (FLUTICASONE PROPINATE) [Concomitant]
  3. CLARITIN [Concomitant]
  4. RHINOCORT [Concomitant]

REACTIONS (9)
  - BLOOD PRESSURE DECREASED [None]
  - DRUG EFFECT DECREASED [None]
  - ELECTROCARDIOGRAM PR PROLONGATION [None]
  - ELECTROCARDIOGRAM QRS COMPLEX PROLONGED [None]
  - ELECTROCARDIOGRAM QT CORRECTED INTERVAL PROLONGED [None]
  - ELECTROCARDIOGRAM QT PROLONGED [None]
  - HEART RATE INCREASED [None]
  - TREATMENT NONCOMPLIANCE [None]
  - VENTRICULAR EXTRASYSTOLES [None]
